FAERS Safety Report 8909629 (Version 2)
Quarter: 2013Q1

REPORT INFORMATION
  Report Type: Spontaneous
  Country: US (occurrence: None)
  Receive Date: 20121109
  Receipt Date: 20130111
  Transmission Date: 20140127
  Serious: Yes (Disabling, Other)
  Sender: FDA-Public Use
  Company Number: CRC-12-544

PATIENT
  Age: 73 Year
  Sex: Female
  Weight: 69.4 kg

DRUGS (4)
  1. ALENDRONATE SODIUM [Suspect]
     Indication: OSTEOPOROSIS
     Dosage: ONE TAB WEEKLY; BY MOUTH
     Route: 048
     Dates: start: 201209, end: 201210
  2. VERAPAMIL [Concomitant]
  3. DETROL [Concomitant]
  4. IBUPROFEN [Concomitant]

REACTIONS (7)
  - Arthralgia [None]
  - Pain in extremity [None]
  - Pain in extremity [None]
  - Bone pain [None]
  - Enchondroma [None]
  - Cartilage neoplasm [None]
  - Arthralgia [None]
